FAERS Safety Report 17911455 (Version 1)
Quarter: 2020Q2

REPORT INFORMATION
  Report Type: Report from Study
  Country: TW (occurrence: TW)
  Receive Date: 20200618
  Receipt Date: 20200618
  Transmission Date: 20200714
  Serious: Yes (Other)
  Sender: FDA-Public Use
  Company Number: TW-EMD SERONO-9167792

PATIENT
  Sex: Female
  Weight: 34 kg

DRUGS (1)
  1. SAIZEN [Suspect]
     Active Substance: SOMATROPIN
     Indication: GROWTH HORMONE DEFICIENCY
     Route: 058
     Dates: start: 20160805

REACTIONS (2)
  - Epiphyses premature fusion [Recovered/Resolved]
  - Therapeutic response decreased [Unknown]
